FAERS Safety Report 9919262 (Version 2)
Quarter: 2014Q2

REPORT INFORMATION
  Report Type: Report from Study
  Country: AU (occurrence: AU)
  Receive Date: 20140224
  Receipt Date: 20140416
  Transmission Date: 20141212
  Serious: Yes (Hospitalization, Other)
  Sender: FDA-Public Use
  Company Number: AU-SA-2014SA018372

PATIENT
  Age: 63 Year
  Sex: Male

DRUGS (6)
  1. ARAVA [Suspect]
     Indication: PRODUCT USED FOR UNKNOWN INDICATION
     Route: 048
     Dates: start: 20130922, end: 20140111
  2. METFORMIN [Concomitant]
  3. PLAQUENIL [Concomitant]
  4. CALTRATE [Concomitant]
  5. FISH OIL [Concomitant]
  6. PREDNISONE [Concomitant]

REACTIONS (6)
  - Oxygen saturation decreased [Recovering/Resolving]
  - Ileal fistula [Recovered/Resolved]
  - Anal haemorrhage [Recovered/Resolved]
  - Polyp [Recovered/Resolved]
  - Defaecation urgency [Recovered/Resolved]
  - Diarrhoea [Recovered/Resolved]
